FAERS Safety Report 24823414 (Version 1)
Quarter: 2025Q1

REPORT INFORMATION
  Report Type: Spontaneous
  Country: None (occurrence: US)
  Receive Date: 20250109
  Receipt Date: 20250109
  Transmission Date: 20250408
  Serious: No
  Sender: STRIDES
  Company Number: -STRIDES ARCOLAB LIMITED-2024SP007155

PATIENT
  Sex: Male

DRUGS (4)
  1. DOXYCYCLINE [Suspect]
     Active Substance: DOXYCYCLINE
     Indication: Liver abscess
     Route: 065
  2. PAROMOMYCIN [Concomitant]
     Active Substance: PAROMOMYCIN
     Indication: Hepatic amoebiasis
     Route: 065
  3. MEROPENEM [Concomitant]
     Active Substance: MEROPENEM
     Indication: Liver abscess
     Route: 065
  4. MEROPENEM [Concomitant]
     Active Substance: MEROPENEM
     Route: 065

REACTIONS (1)
  - Off label use [Unknown]
